FAERS Safety Report 16601922 (Version 2)
Quarter: 2019Q3

REPORT INFORMATION
  Report Type: Spontaneous
  Country: US (occurrence: US)
  Receive Date: 20190719
  Receipt Date: 20190806
  Transmission Date: 20191004
  Serious: Yes (Other)
  Sender: FDA-Public Use
  Company Number: US-BIOMARINAP-US-2019-124712

PATIENT
  Age: 14 Year
  Sex: Female
  Weight: 21.6 kg

DRUGS (2)
  1. VIMIZIM [Suspect]
     Active Substance: ELOSULFASE ALFA
     Dosage: UNK
     Route: 065
     Dates: start: 201411
  2. VIMIZIM [Suspect]
     Active Substance: ELOSULFASE ALFA
     Indication: MUCOPOLYSACCHARIDOSIS IV
     Dosage: 50 MILLIGRAM, QW
     Route: 042
     Dates: start: 20141023

REACTIONS (3)
  - Product dose omission [Unknown]
  - Osteotomy [Unknown]
  - Pyrexia [Unknown]

NARRATIVE: CASE EVENT DATE: 20190712
